FAERS Safety Report 5329358-6 (Version None)
Quarter: 2007Q2

REPORT INFORMATION
  Report Type: 
  Country: None (occurrence: None)
  Receive Date: 20070518
  Receipt Date: 20070508
  Transmission Date: 20071010
  Serious: Yes (Other)
  Sender: FDA-Public Use
  Company Number: CA-PFIZER INC-2007039026

PATIENT
  Sex: Female
  Weight: 78.2 kg

DRUGS (10)
  1. SU-011,248 [Suspect]
     Indication: RENAL CELL CARCINOMA STAGE UNSPECIFIED
     Route: 048
  2. LEVOTHYROXINE SODIUM [Concomitant]
     Route: 048
  3. SENOKOT [Concomitant]
     Route: 048
     Dates: start: 20040501
  4. METOCLOPRAMIDE [Concomitant]
     Route: 048
  5. OXAZEPAM [Concomitant]
     Route: 048
     Dates: start: 20051024
  6. PANTOPRAZOLE SODIUM [Concomitant]
     Route: 048
     Dates: start: 20061010
  7. TUMS [Concomitant]
     Route: 048
     Dates: start: 20061201
  8. TYLENOL [Concomitant]
     Route: 048
  9. CODEINE CONTIN [Concomitant]
     Route: 048
     Dates: start: 20070422
  10. PALAFER [Concomitant]
     Route: 048
     Dates: start: 20070424

REACTIONS (1)
  - HERPES ZOSTER [None]
